FAERS Safety Report 10162425 (Version 1)
Quarter: 2014Q2

REPORT INFORMATION
  Report Type: Spontaneous
  Country: US (occurrence: US)
  Receive Date: 20140509
  Receipt Date: 20140509
  Transmission Date: 20141212
  Serious: No
  Sender: FDA-Public Use
  Company Number: US-GLAXOSMITHKLINE-A1042113A

PATIENT
  Age: 82 Year
  Sex: Male

DRUGS (3)
  1. MUPIROCIN [Suspect]
     Indication: PROPHYLAXIS
     Dosage: 1APP TWICE PER DAY
     Route: 061
     Dates: start: 201305
  2. BACITRACIN [Suspect]
     Indication: PROPHYLAXIS
     Dosage: 1APP TWICE PER DAY
     Route: 061
     Dates: start: 201304
  3. ANTIBIOTICS [Concomitant]

REACTIONS (5)
  - Peripheral swelling [Recovering/Resolving]
  - Application site erythema [Recovering/Resolving]
  - Wound secretion [Recovering/Resolving]
  - Scab [Recovering/Resolving]
  - Blood blister [Not Recovered/Not Resolved]
